FAERS Safety Report 15854481 (Version 1)
Quarter: 2019Q1

REPORT INFORMATION
  Report Type: Spontaneous
  Country: US (occurrence: US)
  Receive Date: 20190122
  Receipt Date: 20190122
  Transmission Date: 20190417
  Serious: Yes (Life-Threatening, Hospitalization, Disabling, Other)
  Sender: FDA-Public Use
  Company Number: None

PATIENT
  Age: 89 Year
  Sex: Female
  Weight: 49.8 kg

DRUGS (20)
  1. APIXABAN [Suspect]
     Active Substance: APIXABAN
     Indication: ATRIAL FIBRILLATION
     Route: 048
     Dates: start: 20180102, end: 20190108
  2. BISACODYL 10 MG SUPPOSITORY [Concomitant]
  3. POLYVINYL ALCOHOL OPTH SOLN [Concomitant]
  4. CARVEDILOL 12.5 MG TABLET [Concomitant]
     Active Substance: CARVEDILOL
  5. MULTIVITAMIN-IRON-FOLIC ACID TABLET [Concomitant]
  6. FERROUS SULFATE 325 MG TABLET [Concomitant]
  7. ACETAMINOPHEN 325 MG TABLET [Concomitant]
  8. AMMONIUM LACTATE 12% SOLUTION [Concomitant]
  9. B COMPLEX VITAMINS TABLET [Concomitant]
  10. DORZOLAMIDE-TIMOLOL OPTH SOLN [Concomitant]
  11. AMLODIPINE 10 MG TABLET [Concomitant]
     Active Substance: AMLODIPINE BESYLATE
  12. LOPERAMIDE 2 MG CAPSULE [Concomitant]
  13. MELATONIN 2 MG TABLET [Concomitant]
  14. TRAMADOL 50 MG TABLET [Concomitant]
  15. BRIMONIDINE 0.2% OPTH SOLN [Concomitant]
  16. POLYETHYLENE GLYCOL [Concomitant]
     Active Substance: POLYETHYLENE GLYCOLS
  17. ARTIFICAL TEARS 0.3% DROPS [Concomitant]
  18. CHOLECALCIFEROL 2,000 UNIT CAPSULE [Concomitant]
  19. ATORVASTATIN 40 MG TABLET [Concomitant]
  20. LEVOTHYROXINE 88MCG CAPSULE [Concomitant]

REACTIONS (2)
  - Haemorrhage intracranial [None]
  - Dysarthria [None]

NARRATIVE: CASE EVENT DATE: 20190108
